FAERS Safety Report 7049986-X (Version None)
Quarter: 2010Q4

REPORT INFORMATION
  Report Type: 
  Country: None (occurrence: None)
  Receive Date: 20101018
  Receipt Date: 20101007
  Transmission Date: 20110411
  Serious: Yes (Other)
  Sender: FDA-Public Use
  Company Number: IE-ASTRAZENECA-2010SE47342

PATIENT
  Age: 51 Year
  Sex: Male
  Weight: 110 kg

DRUGS (3)
  1. ATACAND [Suspect]
     Indication: BLOOD PRESSURE INCREASED
     Route: 048
     Dates: start: 20081211, end: 20081221
  2. ESOMEPRAZOLE [Concomitant]
  3. ALLOPURINOL [Concomitant]

REACTIONS (1)
  - HYPOTENSION [None]
